FAERS Safety Report 4339110-6 (Version None)
Quarter: 2004Q2

REPORT INFORMATION
  Report Type: 
  Country: None (occurrence: None)
  Receive Date: 20040412
  Receipt Date: 20040329
  Transmission Date: 20050107
  Serious: Yes (Other)
  Sender: FDA-Public Use
  Company Number: 2004017753

PATIENT
  Age: 9 Month
  Sex: Female
  Weight: 8.6183 kg

DRUGS (4)
  1. ZYRTEC [Suspect]
     Indication: RHINORRHOEA
     Dosage: 1/4 TSP, ORAL
     Route: 048
     Dates: start: 20031001, end: 20040307
  2. ZITHROMAX [Suspect]
     Indication: OTITIS MEDIA ACUTE
     Dosage: 10 MG/KG (3 DAYS), ORAL
     Route: 048
     Dates: start: 20040308, end: 20040310
  3. ZITHROMAX [Suspect]
     Indication: RHINORRHOEA
     Dosage: 10 MG/KG (3 DAYS), ORAL
     Route: 048
     Dates: start: 20040308, end: 20040310
  4. ZITHROMAX [Suspect]
     Indication: SINUSITIS
     Dosage: 10 MG/KG (3 DAYS), ORAL
     Route: 048
     Dates: start: 20040308, end: 20040310

REACTIONS (10)
  - BRONCHIOLITIS [None]
  - COUGH [None]
  - DRUG INEFFECTIVE [None]
  - EAR HAEMORRHAGE [None]
  - MEDICATION ERROR [None]
  - OTITIS MEDIA ACUTE [None]
  - PHARYNGOLARYNGEAL PAIN [None]
  - POST PROCEDURAL HAEMORRHAGE [None]
  - RHINORRHOEA [None]
  - SINUSITIS [None]
